FAERS Safety Report 8125814-6 (Version None)
Quarter: 2012Q1

REPORT INFORMATION
  Report Type: 
  Country: None (occurrence: None)
  Receive Date: 20120206
  Receipt Date: 20120123
  Transmission Date: 20120608
  Serious: Yes (Other)
  Sender: FDA-Public Use
  Company Number: 2011P1014612

PATIENT
  Age: 76 Year
  Sex: Female

DRUGS (1)
  1. FENTANYL [Suspect]
     Indication: PAIN MANAGEMENT
     Dosage: 1 PATCH; Q72H; TDER
     Route: 062
     Dates: start: 20060206

REACTIONS (6)
  - APPLICATION SITE SCAB [None]
  - APPLICATION SITE REACTION [None]
  - DEVICE LEAKAGE [None]
  - APPLICATION SITE BURN [None]
  - CHEMICAL BURN OF SKIN [None]
  - ESCHAR [None]
